FAERS Safety Report 4658576-5 (Version None)
Quarter: 2005Q2

REPORT INFORMATION
  Report Type: 
  Country: None (occurrence: None)
  Receive Date: 20050509
  Receipt Date: 20050406
  Transmission Date: 20051028
  Serious: Yes (Other)
  Sender: FDA-Public Use
  Company Number: 2004230293US

PATIENT
  Age: 67 Year
  Sex: Female

DRUGS (5)
  1. PROVERA [Suspect]
     Indication: HORMONE REPLACEMENT THERAPY
     Dates: start: 19840101, end: 19970101
  2. CONJUGATED ESTROGENS [Suspect]
     Indication: HORMONE REPLACEMENT THERAPY
     Dates: start: 19830101, end: 19970101
  3. PROVELLA-14 (ESTROGENS CONJUGATED, MEDROXYPROGESTERONE ACETATE) [Suspect]
     Indication: HORMONE REPLACEMENT THERAPY
     Dates: start: 19970101, end: 20011001
  4. WARFARIN SODIUM [Concomitant]
  5. TRIAMTERENE (TRIAMTERENE) [Concomitant]

REACTIONS (6)
  - BREAST CANCER [None]
  - COLON CANCER [None]
  - GALLBLADDER DISORDER [None]
  - HEPATIC NEOPLASM MALIGNANT [None]
  - OVARIAN CANCER [None]
  - THROMBOSIS [None]
